FAERS Safety Report 9548823 (Version 2)
Quarter: 2013Q4

REPORT INFORMATION
  Report Type: Spontaneous
  Country: BR (occurrence: BR)
  Receive Date: 20130924
  Receipt Date: 20131001
  Transmission Date: 20140711
  Serious: Yes (Other)
  Sender: FDA-Public Use
  Company Number: BR-AMGEN-BRASP2013067076

PATIENT
  Age: 61 Year
  Sex: Male
  Weight: 102 kg

DRUGS (5)
  1. ENBREL [Suspect]
     Indication: PSORIATIC ARTHROPATHY
     Dosage: 50 MG, 1X/WEEK
     Route: 058
     Dates: start: 201309
  2. AZUKON MR [Concomitant]
     Indication: DIABETES MELLITUS
     Dosage: UNK
     Dates: start: 201304
  3. DOXAZOSIN MESILATE [Concomitant]
     Indication: PROSTATIC DISORDER
     Dosage: UNK
     Dates: start: 201203
  4. SIMVASTATIN [Concomitant]
     Indication: INFARCTION
     Dosage: UNK
     Dates: start: 2008
  5. ATENOLOL [Concomitant]
     Indication: INFARCTION
     Dosage: UNK
     Dates: start: 2008

REACTIONS (2)
  - Pruritus [Unknown]
  - Erysipelas [Unknown]
